FAERS Safety Report 5822986-0 (Version None)
Quarter: 2008Q3

REPORT INFORMATION
  Report Type: 
  Country: None (occurrence: None)
  Receive Date: 20080725
  Receipt Date: 20080723
  Transmission Date: 20090109
  Serious: Yes (Hospitalization, Other)
  Sender: FDA-Public Use
  Company Number: B0446595A

PATIENT
  Age: 47 Year
  Sex: Male

DRUGS (7)
  1. EPZICOM [Suspect]
     Indication: ACQUIRED IMMUNODEFICIENCY SYNDROME
     Dosage: 1TAB PER DAY
     Route: 048
     Dates: start: 20050511
  2. KALETRA [Suspect]
     Indication: ACQUIRED IMMUNODEFICIENCY SYNDROME
     Dosage: 6CAP PER DAY
     Route: 048
     Dates: start: 20030305
  3. EPIVIR [Suspect]
     Indication: ACQUIRED IMMUNODEFICIENCY SYNDROME
     Dosage: 150MG TWICE PER DAY
     Route: 048
     Dates: start: 20030523, end: 20050510
  4. ZIAGEN [Suspect]
     Indication: ACQUIRED IMMUNODEFICIENCY SYNDROME
     Dosage: 600MG PER DAY
     Route: 048
     Dates: start: 20031205, end: 20050510
  5. LOPERAMIDE HCL [Concomitant]
     Dosage: 1MG PER DAY
     Route: 048
     Dates: start: 20050401
  6. COTRIM [Concomitant]
     Indication: ANTIFUNGAL PROPHYLAXIS
     Dosage: 1TAB PER DAY
     Route: 048
     Dates: start: 20050401, end: 20050511
  7. CYTOTEC [Concomitant]
     Dosage: 200MCG THREE TIMES PER DAY
     Route: 048
     Dates: start: 20050607, end: 20050911

REACTIONS (8)
  - ARTHRALGIA [None]
  - BASEDOW'S DISEASE [None]
  - BLOOD ALKALINE PHOSPHATASE INCREASED [None]
  - HYPERTHYROIDISM [None]
  - OSTEOMALACIA [None]
  - OSTEONECROSIS [None]
  - WEIGHT DECREASED [None]
  - WEIGHT INCREASED [None]
